FAERS Safety Report 7402635-0 (Version None)
Quarter: 2011Q2

REPORT INFORMATION
  Report Type: 
  Country: None (occurrence: None)
  Receive Date: 20110408
  Receipt Date: 20110329
  Transmission Date: 20111010
  Serious: Yes (Other)
  Sender: FDA-Public Use
  Company Number: US-JNJFOC-20100104018

PATIENT
  Sex: Male
  Weight: 81.8 kg

DRUGS (7)
  1. GOLIMUMAB [Suspect]
     Route: 058
  2. FOLIC ACID [Concomitant]
     Route: 048
  3. METHOTREXATE [Concomitant]
     Route: 048
  4. GOLIMUMAB [Suspect]
     Indication: PSORIATIC ARTHROPATHY
     Route: 058
  5. GOLIMUMAB [Suspect]
     Route: 058
  6. METHOTREXATE [Concomitant]
     Route: 048
  7. VITAMIN D [Concomitant]
     Route: 048

REACTIONS (1)
  - COLON CANCER METASTATIC [None]
